FAERS Safety Report 4643001-0 (Version None)
Quarter: 2005Q2

REPORT INFORMATION
  Report Type: 
  Country: None (occurrence: None)
  Receive Date: 20050421
  Receipt Date: 20050415
  Transmission Date: 20051028
  Serious: Yes (Hospitalization)
  Sender: FDA-Public Use
  Company Number: 200511011GDS

PATIENT
  Age: 78 Year
  Sex: Male

DRUGS (2)
  1. ASPIRIN [Suspect]
     Indication: ATRIAL FIBRILLATION
     Dosage: ORAL
     Route: 048
     Dates: start: 20020101, end: 20040101
  2. WARFARIN POTASSIUM [Suspect]
     Indication: ATRIAL FIBRILLATION
     Dosage: ORAL
     Route: 048
     Dates: start: 20020101, end: 20040101

REACTIONS (6)
  - COAGULATION TIME SHORTENED [None]
  - DIFFICULTY IN WALKING [None]
  - FEMORAL NERVE PALSY [None]
  - GROIN PAIN [None]
  - MUSCLE HAEMORRHAGE [None]
  - TENDERNESS [None]
